FAERS Safety Report 6597749-1 (Version None)
Quarter: 2010Q1

REPORT INFORMATION
  Report Type: 
  Country: None (occurrence: None)
  Receive Date: 20100216
  Receipt Date: 20100131
  Transmission Date: 20100710
  Serious: Yes (Hospitalization)
  Sender: FDA-Public Use
  Company Number: 2010BM000032

PATIENT
  Age: 18 Month
  Sex: Female
  Weight: 8.5 kg

DRUGS (13)
  1. NAGLAZYME [Suspect]
     Indication: MUCOPOLYSACCHARIDOSIS VI
     Dosage: 10 MG; IVDRP
     Route: 041
     Dates: start: 20100128
  2. ALBUTEROL [Concomitant]
  3. BUDESONIDE [Concomitant]
  4. CAPTOPRIL [Concomitant]
  5. FERROUS SULFATE TAB [Concomitant]
  6. GLYCOPYRROLATE [Concomitant]
  7. HEPARIN LOCK-FLUSH [Concomitant]
  8. LORATADINE [Concomitant]
  9. POLYETHYLENE GLYCOL [Concomitant]
  10. RANITIDINE [Concomitant]
  11. DIPHENHYDRAMINE HCL [Concomitant]
  12. NORMAL SALINE [Concomitant]
  13. METHADONE HCL [Concomitant]

REACTIONS (6)
  - ABDOMINAL DISTENSION [None]
  - DEVICE RELATED INFECTION [None]
  - ENTEROCOCCAL INFECTION [None]
  - HAEMATOCRIT DECREASED [None]
  - HAEMOGLOBIN DECREASED [None]
  - SEPSIS [None]
